FAERS Safety Report 6286920-4 (Version None)
Quarter: 2009Q3

REPORT INFORMATION
  Report Type: 
  Country: None (occurrence: None)
  Receive Date: 20090728
  Receipt Date: 20090722
  Transmission Date: 20100115
  Serious: Yes (Other)
  Sender: FDA-Public Use
  Company Number: CN-JNJFOC-20090707806

PATIENT

DRUGS (1)
  1. NIZORAL [Suspect]
     Indication: FUNGAL INFECTION
     Route: 048

REACTIONS (1)
  - GENERALISED OEDEMA [None]
